FAERS Safety Report 10168552 (Version 1)
Quarter: 2014Q2

REPORT INFORMATION
  Report Type: Report from Study
  Country: FR (occurrence: FR)
  Receive Date: 20140513
  Receipt Date: 20140513
  Transmission Date: 20141212
  Serious: Yes (Hospitalization)
  Sender: FDA-Public Use
  Company Number: FR-ROCHE-1399716

PATIENT
  Age: 53 Year
  Sex: Male

DRUGS (1)
  1. RITUXIMAB [Suspect]
     Indication: GRANULOMATOSIS WITH POLYANGIITIS
     Route: 042
     Dates: start: 200505, end: 20131030

REACTIONS (1)
  - Bladder transitional cell carcinoma [Recovered/Resolved]
